FAERS Safety Report 10502602 (Version 2)
Quarter: 2014Q4

REPORT INFORMATION
  Report Type: Spontaneous
  Country: US (occurrence: US)
  Receive Date: 20141007
  Receipt Date: 20141020
  Transmission Date: 20150528
  Serious: No
  Sender: FDA-Public Use
  Company Number: US-009507513-1409USA008943

PATIENT
  Age: 68 Year
  Sex: Female

DRUGS (3)
  1. PROVENTIL [Concomitant]
     Active Substance: ALBUTEROL
  2. SINGULAIR [Concomitant]
     Active Substance: MONTELUKAST SODIUM
     Route: 048
  3. ASMANEX [Suspect]
     Active Substance: MOMETASONE FUROATE
     Indication: ASTHMA
     Dosage: 1 DF, QD,FREQUENCY REPORTED-1 PUFF ONCE DAILY OR AS NEEDED,STRENGTH REPORTED 220 Y(UNSPECIFIED UNIT)
     Route: 055

REACTIONS (7)
  - Dyspnoea [Unknown]
  - Drug dose omission [Unknown]
  - Product physical issue [Unknown]
  - Dyspnoea [Unknown]
  - Dissociation [Unknown]
  - Thinking abnormal [Unknown]
  - Incorrect dose administered by device [Unknown]

NARRATIVE: CASE EVENT DATE: 201402
